FAERS Safety Report 19259575 (Version 1)
Quarter: 2021Q2

REPORT INFORMATION
  Report Type: Spontaneous
  Country: ML (occurrence: ML)
  Receive Date: 20210514
  Receipt Date: 20210514
  Transmission Date: 20210717
  Serious: Yes (Other)
  Sender: FDA-Public Use
  Company Number: ML-POPULATION COUNCIL-2021TPC000045

PATIENT
  Age: 41 Year
  Sex: Female

DRUGS (2)
  1. ANTIVIRALS FOR TREATMENT OF HIV INFECTIONS, COMBINATIONS [Concomitant]
     Indication: HIV INFECTION
  2. JADELLE [Suspect]
     Active Substance: LEVONORGESTREL
     Indication: CONTRACEPTION
     Route: 059
     Dates: start: 20180503, end: 20210324

REACTIONS (2)
  - Drug ineffective [Unknown]
  - Pregnancy with implant contraceptive [Unknown]

NARRATIVE: CASE EVENT DATE: 20210324
